FAERS Safety Report 7445045-2 (Version None)
Quarter: 2011Q2

REPORT INFORMATION
  Report Type: 
  Country: None (occurrence: None)
  Receive Date: 20110429
  Receipt Date: 20110421
  Transmission Date: 20111010
  Serious: Yes (Hospitalization)
  Sender: FDA-Public Use
  Company Number: US-BAYER-2011-029797

PATIENT
  Age: 66 Year
  Sex: Female

DRUGS (2)
  1. BLINDED SORAFENIB (RAF KINASE INHIBITOR) [Suspect]
     Dosage: 400 MG, BID
     Route: 048
     Dates: start: 20110330, end: 20110404
  2. BLINDED SORAFENIB (RAF KINASE INHIBITOR) [Suspect]
     Indication: T-CELL LYMPHOMA
     Dosage: 400 MG, BID
     Route: 048
     Dates: start: 20110309, end: 20110310

REACTIONS (4)
  - FATIGUE [None]
  - SEPSIS [None]
  - ASTHENIA [None]
  - STAPHYLOCOCCAL BACTERAEMIA [None]
